FAERS Safety Report 18257864 (Version 3)
Quarter: 2022Q1

REPORT INFORMATION
  Report Type: Spontaneous
  Country: US (occurrence: US)
  Receive Date: 20200911
  Receipt Date: 20220222
  Transmission Date: 20220423
  Serious: No
  Sender: FDA-Public Use
  Company Number: US-PFIZER INC-2019120485

PATIENT
  Age: 52 Year
  Sex: Female
  Weight: 71.21 kg

DRUGS (3)
  1. LYRICA [Suspect]
     Active Substance: PREGABALIN
     Indication: Neuralgia
     Dosage: 50 MG TO 100 MG, EVERY 4 HOURS (6 TIMES DAILY)
  2. LYRICA [Suspect]
     Active Substance: PREGABALIN
     Indication: Neuropathy peripheral
     Dosage: 50 MG, EVERY 4 HOURS (6 TIMES DAILY)
  3. LYRICA [Suspect]
     Active Substance: PREGABALIN
     Dosage: 300 MG, DAILY (TAKE 6 CAPSULES BY MOUTH EVERYDAY)
     Route: 048

REACTIONS (4)
  - Drug ineffective [Unknown]
  - COVID-19 [Recovering/Resolving]
  - Pain [Unknown]
  - Intentional product use issue [Unknown]
